FAERS Safety Report 7227114-5 (Version None)
Quarter: 2011Q1

REPORT INFORMATION
  Report Type: 
  Country: None (occurrence: None)
  Receive Date: 20110114
  Receipt Date: 20110110
  Transmission Date: 20110831
  Serious: Yes (Other)
  Sender: FDA-Public Use
  Company Number: ES-ROCHE-752536

PATIENT
  Sex: Female

DRUGS (1)
  1. XELODA [Suspect]
     Indication: COLON CANCER
     Dosage: START DATE: JANUARY 2011 (ESTIMATED), STOP DATE: JANUARY 2011
     Route: 065

REACTIONS (1)
  - MUCOSAL INFLAMMATION [None]
